FAERS Safety Report 9233758 (Version 1)
Quarter: 2013Q1

REPORT INFORMATION
  Report Type: Spontaneous
  Country: US (occurrence: None)
  Receive Date: 20121031
  Receipt Date: 20121031
  Transmission Date: 20140127
  Serious: Yes (Other)
  Sender: FDA-Public Use
  Company Number: PHEH2012US013574

PATIENT
  Age: 45 Year
  Sex: Female

DRUGS (14)
  1. GILENYA [Suspect]
     Indication: MULTIPLE SCLEROSIS
     Route: 048
  2. ADVAIR (FLUTICASONE PROPIONATE, SALMETEROL XINFOATE) [Concomitant]
  3. BACLOFEN [Concomitant]
  4. BUSPRIONE HYDROCHLORIDE (BUSPIRONE HYDROCHLORIDE) [Concomitant]
  5. CARISOPRODOL (CARISOPRODOL) [Concomitant]
  6. FLUTICASONE (FLUTICASONE) [Concomitant]
  7. HYDROCODONE (HYDROCODONE) [Concomitant]
  8. LISINIOPRIL (LISINOPRIL) [Concomitant]
  9. MELOXICAM (MELOXICAM) [Concomitant]
  10. OXYBUTYNON (OXYBUTYNIN) [Concomitant]
  11. PANTOPRAZOLE (PANTOPRAZOLE) [Concomitant]
  12. OLOPANTADINE HYDROCHLORDE (OLOPANTADINE HYDROCHLORIDE) [Concomitant]
  13. PHENOLINETRAZINE [Concomitant]
  14. SIMVASTATIN (SIMVASTATIN) [Concomitant]

REACTIONS (1)
  - Herpes zoster [None]
